FAERS Safety Report 7634116-3 (Version None)
Quarter: 2011Q3

REPORT INFORMATION
  Report Type: 
  Country: None (occurrence: None)
  Receive Date: 20110725
  Receipt Date: 20110722
  Transmission Date: 20111222
  Serious: No
  Sender: FDA-Public Use
  Company Number: US-PFIZER INC-2011167370

PATIENT
  Sex: Female
  Weight: 63.5 kg

DRUGS (14)
  1. OMEPRAZOLE [Concomitant]
     Dosage: 20 MG, UNK
  2. LOVAZA [Concomitant]
     Dosage: 200 MG, UNK
  3. MEPHYTON [Concomitant]
     Dosage: 80 MG, DAILY
  4. MILK THISTLE [Concomitant]
     Dosage: 1000 MG, UNK
  5. CHANTIX [Suspect]
     Indication: SMOKING CESSATION THERAPY
     Dosage: 0.5 MG, 1X/DAY
     Route: 048
     Dates: start: 20110609, end: 20110101
  6. CHANTIX [Suspect]
     Dosage: 1 MG, 2X/DAY
     Route: 048
     Dates: start: 20110101, end: 20110621
  7. ALDACTONE [Concomitant]
     Dosage: 100 MG, UNK
  8. VITAMIN D [Concomitant]
     Dosage: 1800 IU, UNK
  9. RED YEAST RICE [Concomitant]
     Dosage: 600 MG, UNK
  10. CALCIUM [Concomitant]
     Dosage: 2000 MG, UNK
  11. FLAXSEED OIL [Concomitant]
     Dosage: UNK
  12. PROPRANOLOL [Concomitant]
     Dosage: 200 MG, 2X/DAY
  13. NADOLOL [Concomitant]
     Dosage: 80 MG, UNK
  14. LYRICA [Concomitant]
     Dosage: 100 MG, 3X/DAY

REACTIONS (6)
  - MOBILITY DECREASED [None]
  - PAROSMIA [None]
  - DYSGEUSIA [None]
  - RETCHING [None]
  - BEDRIDDEN [None]
  - DECREASED APPETITE [None]
